FAERS Safety Report 9698053 (Version 1)
Quarter: 2013Q4

REPORT INFORMATION
  Report Type: Report from Study
  Country: US (occurrence: US)
  Receive Date: 20131120
  Receipt Date: 20131120
  Transmission Date: 20140711
  Serious: Yes (Hospitalization, Other)
  Sender: FDA-Public Use
  Company Number: US-MERCK-1311USA005033

PATIENT
  Age: 66 Year
  Sex: Male
  Weight: 64.5 kg

DRUGS (15)
  1. EZETIMIBE (+) SIMVASTATIN [Suspect]
     Indication: ACUTE CORONARY SYNDROME
     Dosage: UNK
     Route: 048
     Dates: start: 20100625
  2. FOLIC ACID [Concomitant]
     Dosage: 1200MG DAILY
     Route: 048
     Dates: start: 19990610
  3. ALLEGRA [Concomitant]
     Dosage: 180MG DAILY
     Route: 048
     Dates: start: 19990610
  4. ASPIRIN [Concomitant]
     Dosage: 81MG DAILY
     Route: 048
     Dates: start: 20110131
  5. SPIRONOLACTONE [Concomitant]
     Dosage: 25MG DAILY
     Route: 048
     Dates: start: 20110519
  6. FLOMAX (MORNIFLUMATE) [Concomitant]
     Dosage: 0.4MG DAILY
     Route: 048
     Dates: start: 20110514
  7. EFFIENT [Concomitant]
     Dosage: 10MG DAILY
     Route: 048
     Dates: start: 20100624
  8. PRILOSEC [Concomitant]
     Dosage: 80MG DAILY
     Route: 048
     Dates: start: 20120705
  9. ALTACE [Concomitant]
     Dosage: 5MG DAILY
     Route: 048
     Dates: start: 20110519
  10. COREG [Concomitant]
     Dosage: 25MG DAILY
     Route: 048
     Dates: start: 20110519
  11. NITRO-DUR [Concomitant]
     Dosage: UNK, PRN
     Route: 060
     Dates: start: 19980228
  12. RANEXA [Concomitant]
     Dosage: 1000MG DAILY
     Route: 048
     Dates: start: 20061011
  13. ARGININE [Concomitant]
     Dosage: 1000MG DAILY
     Route: 048
     Dates: start: 20070227
  14. DEMADEX [Concomitant]
     Dosage: 20MG DAILY
     Route: 048
     Dates: start: 20110519
  15. AMBIEN [Concomitant]
     Dosage: 12.5MG DAILY
     Route: 048
     Dates: start: 20111024

REACTIONS (1)
  - Cholelithiasis [Recovered/Resolved]
